FAERS Safety Report 8553828-0 (Version None)
Quarter: 2012Q3

REPORT INFORMATION
  Report Type: 
  Country: None (occurrence: None)
  Receive Date: 20120725
  Receipt Date: 20120725
  Transmission Date: 20120928
  Serious: Yes (Life-Threatening, Hospitalization)
  Sender: FDA-Public Use
  Company Number: None

PATIENT
  Age: 47 Year
  Sex: Female
  Weight: 58.9676 kg

DRUGS (2)
  1. BACTRIM [Suspect]
     Indication: WART EXCISION
     Dosage: DAILY
     Dates: start: 20110720, end: 20110808
  2. BACTRIM [Suspect]
     Indication: LOCALISED INFECTION
     Dosage: DAILY
     Dates: start: 20110720, end: 20110808

REACTIONS (2)
  - STEVENS-JOHNSON SYNDROME [None]
  - TOXIC EPIDERMAL NECROLYSIS [None]
